FAERS Safety Report 18469833 (Version 2)
Quarter: 2020Q4

REPORT INFORMATION
  Report Type: Spontaneous
  Country: IT (occurrence: IT)
  Receive Date: 20201105
  Receipt Date: 20201119
  Transmission Date: 20210114
  Serious: Yes (Hospitalization)
  Sender: FDA-Public Use
  Company Number: IT-009507513-2011ITA001073

PATIENT
  Age: 44 Year
  Sex: Male

DRUGS (8)
  1. SIMVASTATIN. [Concomitant]
     Active Substance: SIMVASTATIN
     Indication: HYPERCHOLESTEROLAEMIA
     Dosage: 200 MILLIGRAM
     Route: 048
  2. IRON (UNSPECIFIED) [Concomitant]
     Active Substance: IRON
     Indication: ANAEMIA
     Dosage: 300 MILLIGRAM
     Route: 048
  3. TRIATEC (RAMIPRIL) [Concomitant]
     Active Substance: RAMIPRIL
     Indication: HYPERTENSION
     Dosage: 17.5 MILLIGRAM
     Route: 048
  4. MIRTAZAPINE. [Suspect]
     Active Substance: MIRTAZAPINE
     Indication: DEPRESSION
     Dosage: 300 MILLIGRAM, (TOTAL)
     Route: 048
     Dates: start: 20200111, end: 20200111
  5. DELORAZEPAM [Concomitant]
     Active Substance: DELORAZEPAM
     Indication: ANXIETY
     Dosage: 20 MILLILITER
     Route: 048
  6. DAFLON (OLD FORMULA) [Concomitant]
     Indication: PERIPHERAL VENOUS DISEASE
     Dosage: 5 GRAM
     Route: 048
  7. DULOXETINE HYDROCHLORIDE. [Concomitant]
     Active Substance: DULOXETINE HYDROCHLORIDE
     Indication: DEPRESSION
     Dosage: 300 MILLIGRAM
     Route: 048
  8. CLOZAPINE. [Suspect]
     Active Substance: CLOZAPINE
     Indication: PSYCHOTIC DISORDER
     Dosage: 1 GRAM, (TOTAL)
     Route: 048

REACTIONS (4)
  - Sopor [Recovered/Resolved]
  - Hypertension [Recovered/Resolved]
  - Confusional state [Recovered/Resolved]
  - Tachycardia [Recovered/Resolved]

NARRATIVE: CASE EVENT DATE: 20200111
